FAERS Safety Report 9274643 (Version 1)
Quarter: 2013Q2

REPORT INFORMATION
  Report Type: Spontaneous
  Country: US (occurrence: None)
  Receive Date: 20130429
  Receipt Date: 20130429
  Transmission Date: 20140414
  Serious: Yes (Other)
  Sender: FDA-Public Use
  Company Number: CIP-2013-00121

PATIENT
  Sex: 0

DRUGS (7)
  1. LOPINAVIR/RITONAVIR [Suspect]
     Indication: HIV INFECTION
  2. LOPINAVIR/RITONAVIR [Suspect]
  3. LOPINAVIR/RITONAVIR [Suspect]
     Indication: HIV INFECTION
  4. LOPINAVIR/RITONAVIR [Suspect]
     Indication: HIV INFECTION
  5. LAMIVUDINE [Suspect]
     Indication: HIV INFECTION
  6. STAVUDINE [Suspect]
     Indication: HIV INFECTION
  7. EFAVIRENZ [Suspect]
     Indication: HIV INFECTION

REACTIONS (1)
  - Paraplegia [None]
